FAERS Safety Report 19658069 (Version 36)
Quarter: 2025Q1

REPORT INFORMATION
  Report Type: Spontaneous
  Country: IN (occurrence: IN)
  Receive Date: 20210804
  Receipt Date: 20250321
  Transmission Date: 20250408
  Serious: Yes (Other)
  Sender: PFIZER
  Company Number: IN-PFIZER INC-2021622723

PATIENT
  Age: 68 Year
  Sex: Female

DRUGS (9)
  1. PALBOCICLIB [Suspect]
     Active Substance: PALBOCICLIB
     Indication: Breast cancer metastatic
     Dosage: 125 MG, 1X/DAY
     Route: 048
     Dates: start: 20210412, end: 20210709
  2. PALBOCICLIB [Suspect]
     Active Substance: PALBOCICLIB
     Route: 048
     Dates: start: 20210709
  3. PALBOCICLIB [Suspect]
     Active Substance: PALBOCICLIB
     Route: 048
     Dates: start: 20230428
  4. PALBOCICLIB [Suspect]
     Active Substance: PALBOCICLIB
     Dosage: 75 MG, DAILY
     Route: 048
  5. PALBOCICLIB [Suspect]
     Active Substance: PALBOCICLIB
     Dosage: 125 MG, 1X/DAY
     Route: 048
  6. PALBOCICLIB [Suspect]
     Active Substance: PALBOCICLIB
     Dosage: 75 MG, 1X/DAY
     Route: 048
  7. LETROZOLE [Concomitant]
     Active Substance: LETROZOLE
     Dosage: 2.5 MG, 1X/DAY
  8. CALCIUM CARBONATE\CHOLECALCIFEROL [Concomitant]
     Active Substance: CALCIUM CARBONATE\CHOLECALCIFEROL
     Dosage: UNK, 1X/DAY
  9. ZOLEDRONIC ACID [Concomitant]
     Active Substance: ZOLEDRONIC ACID

REACTIONS (38)
  - Deafness [Unknown]
  - Anaemia [Recovering/Resolving]
  - Venous thrombosis [Unknown]
  - Creatinine renal clearance increased [Unknown]
  - White blood cell count decreased [Unknown]
  - Neutrophil count decreased [Unknown]
  - Illness [Unknown]
  - Blood calcium decreased [Unknown]
  - Metastases to bone [Unknown]
  - Insomnia [Unknown]
  - Ageusia [Unknown]
  - Decreased appetite [Unknown]
  - Fatigue [Not Recovered/Not Resolved]
  - Pruritus [Recovered/Resolved]
  - Toothache [Unknown]
  - Asthenia [Unknown]
  - Arthralgia [Unknown]
  - Feeding disorder [Unknown]
  - Pain [Unknown]
  - Dizziness [Unknown]
  - Blood pressure increased [Unknown]
  - Platelet count decreased [Recovering/Resolving]
  - Neutrophil percentage decreased [Recovering/Resolving]
  - Viral infection [Recovered/Resolved]
  - Lymphocyte percentage increased [Recovering/Resolving]
  - Monocyte percentage increased [Recovered/Resolved]
  - Weight decreased [Recovering/Resolving]
  - Early satiety [Unknown]
  - Creatinine renal clearance decreased [Unknown]
  - Back pain [Not Recovered/Not Resolved]
  - Aspartate aminotransferase increased [Recovering/Resolving]
  - Spinal osteoarthritis [Unknown]
  - Bone lesion [Unknown]
  - Rash [Unknown]
  - Blood creatinine increased [Unknown]
  - Pain in extremity [Unknown]
  - Red blood cell nucleated morphology present [Recovering/Resolving]
  - Eastern Cooperative Oncology Group performance status worsened [Unknown]

NARRATIVE: CASE EVENT DATE: 20210101
